FAERS Safety Report 18484102 (Version 1)
Quarter: 2020Q4

REPORT INFORMATION
  Report Type: Spontaneous
  Country: US (occurrence: US)
  Receive Date: 20201110
  Receipt Date: 20201110
  Transmission Date: 20210114
  Serious: Yes (Other)
  Sender: FDA-Public Use
  Company Number: US-009507513-2007USA007874

PATIENT
  Sex: Female

DRUGS (4)
  1. ZOSTAVAX [Suspect]
     Active Substance: VARICELLA-ZOSTER VIRUS STRAIN OKA/MERCK LIVE ANTIGEN
     Indication: ROUTINE HEALTH MAINTENANCE
     Dosage: .65 MILLILITER
     Route: 058
     Dates: start: 20110519
  2. STERILE DILUENT (WATER) [Suspect]
     Active Substance: WATER
     Indication: PROPHYLAXIS
     Dosage: 0.65 MILLILITER, ONCE WITH ZOSTER VACCINE LIVE (ZOSTAVAX) VACCINATION
     Route: 058
     Dates: start: 20110519, end: 20110519
  3. ROSUVASTATIN. [Concomitant]
     Active Substance: ROSUVASTATIN
     Indication: BLOOD CHOLESTEROL INCREASED
     Dosage: 10 MG, 1 X DAY
     Dates: start: 1996
  4. ZOSTAVAX [Suspect]
     Active Substance: VARICELLA-ZOSTER VIRUS STRAIN OKA/MERCK LIVE ANTIGEN
     Indication: PROPHYLAXIS

REACTIONS (8)
  - Restless legs syndrome [Unknown]
  - Stress [Unknown]
  - Hypertension [Unknown]
  - Facial paralysis [Recovered/Resolved]
  - Vaccination failure [Unknown]
  - Emotional distress [Unknown]
  - Herpes zoster [Not Recovered/Not Resolved]
  - Depression [Unknown]

NARRATIVE: CASE EVENT DATE: 201212
